FAERS Safety Report 18297305 (Version 1)
Quarter: 2020Q3

REPORT INFORMATION
  Report Type: Spontaneous
  Country: US (occurrence: US)
  Receive Date: 20200922
  Receipt Date: 20200922
  Transmission Date: 20201103
  Serious: No
  Sender: FDA-Public Use
  Company Number: US-AMARIN PHARMA, INC.-2019AMR000335

PATIENT
  Sex: Male

DRUGS (2)
  1. VITAMINS [Concomitant]
     Active Substance: VITAMINS
  2. VASCEPA [Suspect]
     Active Substance: ICOSAPENT ETHYL
     Indication: PRODUCT USED FOR UNKNOWN INDICATION
     Route: 048

REACTIONS (3)
  - Product physical issue [Unknown]
  - Paraesthesia oral [Unknown]
  - Anxiety [Unknown]

NARRATIVE: CASE EVENT DATE: 20190820
